FAERS Safety Report 9187946 (Version 1)
Quarter: 2013Q1

REPORT INFORMATION
  Report Type: Spontaneous
  Country: US (occurrence: US)
  Receive Date: 20130325
  Receipt Date: 20130325
  Transmission Date: 20140127
  Serious: No
  Sender: FDA-Public Use
  Company Number: US-MYLANLABS-2012S1019905

PATIENT
  Age: 61 Year
  Sex: Female
  Weight: 93.9 kg

DRUGS (9)
  1. FENTANYL TRANSDERMAL SYSTEM [Suspect]
     Indication: ARTHRALGIA
     Dosage: CHANGED Q72H
     Route: 062
     Dates: start: 20120917
  2. FENTANYL TRANSDERMAL SYSTEM [Suspect]
     Indication: ANKLE FRACTURE
     Dosage: CHANGED Q72H
     Route: 062
     Dates: start: 20120917
  3. NUCYNTA [Suspect]
  4. VICODIN [Suspect]
  5. VALIUM [Suspect]
  6. SYNTHROID [Concomitant]
     Indication: HYPOTHYROIDISM
  7. ACTOS [Concomitant]
     Indication: DIABETES MELLITUS
  8. GABAPENTIN [Concomitant]
     Indication: BACK PAIN
  9. BENADRYL [Concomitant]

REACTIONS (6)
  - Drug ineffective [Not Recovered/Not Resolved]
  - Pain [Not Recovered/Not Resolved]
  - Diarrhoea [Recovered/Resolved]
  - Vomiting [Recovered/Resolved]
  - Wrong technique in drug usage process [Not Recovered/Not Resolved]
  - Treatment noncompliance [Not Recovered/Not Resolved]
